FAERS Safety Report 14107583 (Version 2)
Quarter: 2018Q1

REPORT INFORMATION
  Report Type: Not Available
  Country: US (occurrence: US)
  Receive Date: 20171019
  Receipt Date: 20180121
  Transmission Date: 20180508
  Serious: No
  Sender: FDA-Public Use
  Company Number: US-NEUROCRINE BIOSCIENCES INC.-2017NBI00762

PATIENT
  Age: 55 Year
  Sex: Female
  Weight: 134.38 kg

DRUGS (17)
  1. COMBIVENT RESPIMAT [Concomitant]
     Active Substance: ALBUTEROL SULFATE\IPRATROPIUM BROMIDE
     Dosage: 20-100 MCG/ACTUATION MIST
     Dates: start: 20170817
  2. METFORMIN [Concomitant]
     Active Substance: METFORMIN HYDROCHLORIDE
     Dates: start: 20170828
  3. PIOGLITAZONE. [Concomitant]
     Active Substance: PIOGLITAZONE
     Dates: end: 20171026
  4. INGREZZA [Suspect]
     Active Substance: VALBENAZINE
     Route: 048
     Dates: start: 20170721, end: 20170721
  5. VENLAFAXINE [Concomitant]
     Active Substance: VENLAFAXINE HYDROCHLORIDE
     Dosage: 150 MG CAPSULE EXTENDED RELEASE 24 HR, 1 CAPSULE BY MOUTH EVERY MORNING TAKE WITH 150 MG FOR TOTAL 2
     Dates: end: 20170920
  6. VENLAFAXINE [Concomitant]
     Active Substance: VENLAFAXINE HYDROCHLORIDE
     Dosage: IN THE MORNING
     Route: 048
     Dates: start: 20170920
  7. SERTRALINE [Concomitant]
     Active Substance: SERTRALINE HYDROCHLORIDE
     Dosage: IN THE MORNING
     Route: 048
     Dates: start: 20170615, end: 20170920
  8. HALOPERIDOL. [Concomitant]
     Active Substance: HALOPERIDOL
     Dosage: 5 MG TABLET, 1 BY MOUTH IN THE MORNING AND 2 BY MOUTH AT BEDTIME
     Dates: start: 20150220
  9. HALDOL DECANOATE [Concomitant]
     Active Substance: HALOPERIDOL DECANOATE
     Dosage: 100 MG/ML SOLUTION, 1 ML INTRAMUSCULARLY AS DIRECTED. INJECTION EVERY 2 WEEKS
     Dates: start: 20160825
  10. SERTRALINE [Concomitant]
     Active Substance: SERTRALINE HYDROCHLORIDE
     Dosage: IN THE MORNING
     Route: 048
     Dates: start: 20161128, end: 20170616
  11. INGREZZA [Suspect]
     Active Substance: VALBENAZINE
     Indication: TARDIVE DYSKINESIA
     Route: 048
     Dates: start: 20170714, end: 20170720
  12. PIOGLITAZONE-METFORMIN [Concomitant]
     Dosage: 15-500 MG TABLET
     Dates: end: 20171026
  13. LOSARTAN-HYDROCHLOROTHIAZIDE [Concomitant]
     Active Substance: HYDROCHLOROTHIAZIDE\LOSARTAN
     Dosage: 50-12.5 MG TABLET
     Dates: end: 20171026
  14. INGREZZA [Suspect]
     Active Substance: VALBENAZINE
     Dosage: IN THE EVENING
     Route: 048
     Dates: start: 20170728, end: 20170920
  15. BENZTROPINE [Concomitant]
     Active Substance: BENZTROPINE
     Indication: TREMOR
     Dates: start: 20171026
  16. BENZTROPINE [Concomitant]
     Active Substance: BENZTROPINE
     Indication: MUSCULOSKELETAL STIFFNESS
  17. PRILOSEC [Concomitant]
     Active Substance: OMEPRAZOLE MAGNESIUM
     Dates: end: 20171026

REACTIONS (4)
  - Malaise [Unknown]
  - Pruritus [Recovered/Resolved]
  - Rash generalised [Recovered/Resolved]
  - Swelling [Recovered/Resolved]

NARRATIVE: CASE EVENT DATE: 2017
